FAERS Safety Report 6998929-3 (Version None)
Quarter: 2010Q3

REPORT INFORMATION
  Report Type: 
  Country: None (occurrence: None)
  Receive Date: 20100920
  Receipt Date: 20070523
  Transmission Date: 20110219
  Serious: Yes (Other)
  Sender: FDA-Public Use
  Company Number: US-ASTRAZENECA-2006UW23729

PATIENT
  Age: 18279 Day
  Sex: Male
  Weight: 84.8 kg

DRUGS (20)
  1. SEROQUEL [Suspect]
     Indication: BIPOLAR DISORDER
     Route: 048
     Dates: start: 20010101, end: 20060101
  2. SEROQUEL [Suspect]
     Indication: DEPRESSION
     Route: 048
     Dates: start: 20010101, end: 20060101
  3. SEROQUEL [Suspect]
     Indication: TACHYPHRENIA
     Route: 048
     Dates: start: 20010101, end: 20060101
  4. SEROQUEL [Suspect]
     Indication: MOOD SWINGS
     Route: 048
     Dates: start: 20010101, end: 20060101
  5. SEROQUEL [Suspect]
     Dosage: 25-600 MG
     Route: 048
     Dates: start: 20030806
  6. SEROQUEL [Suspect]
     Dosage: 25-600 MG
     Route: 048
     Dates: start: 20030806
  7. SEROQUEL [Suspect]
     Dosage: 25-600 MG
     Route: 048
     Dates: start: 20030806
  8. SEROQUEL [Suspect]
     Dosage: 25-600 MG
     Route: 048
     Dates: start: 20030806
  9. PAXIL [Concomitant]
     Dates: start: 20030806
  10. NORTRIPTYLINE HCL [Concomitant]
     Dosage: 75 MG TWO TABLETS, QHS
     Dates: start: 20011010
  11. ROBAXIN [Concomitant]
     Dates: start: 20030901
  12. PROPRANOLOL [Concomitant]
     Dates: start: 20070920
  13. LOVASTATIN [Concomitant]
     Dates: start: 20070920
  14. BACLOFEN [Concomitant]
     Dates: start: 20070920
  15. PRILOSEC [Concomitant]
     Route: 048
     Dates: start: 20070920
  16. FIORINAL [Concomitant]
     Indication: HEADACHE
     Dates: start: 20080319
  17. RELAFEN [Concomitant]
     Dates: start: 20080319
  18. CYMBALTA [Concomitant]
     Dates: start: 20080319
  19. AMITRIPTYLINE HCL [Concomitant]
     Dates: start: 20080319
  20. EFFEXOR [Concomitant]
     Dosage: 75 MG, TWO TABLETS AM, TWO TABLETS PM
     Dates: start: 20031217

REACTIONS (3)
  - BLOOD GLUCOSE INCREASED [None]
  - TARDIVE DYSKINESIA [None]
  - TYPE 1 DIABETES MELLITUS [None]
